FAERS Safety Report 6981447-6 (Version None)
Quarter: 2010Q3

REPORT INFORMATION
  Report Type: 
  Country: None (occurrence: None)
  Receive Date: 20100914
  Receipt Date: 20100831
  Transmission Date: 20110219
  Serious: Yes (Death)
  Sender: FDA-Public Use
  Company Number: US-MYLANLABS-2010S1015916

PATIENT
  Age: 48 Year
  Sex: Female

DRUGS (7)
  1. FENTANYL CITRATE [Suspect]
     Route: 062
  2. HYDROCODONE [Suspect]
     Route: 065
  3. FLUOXETINE [Suspect]
     Route: 065
  4. MECLIZINE [Suspect]
     Route: 065
  5. DULOXETINE [Suspect]
     Route: 065
  6. ACETAMINOPHEN [Suspect]
     Route: 065
  7. THEOPHYLLINE [Suspect]
     Route: 065

REACTIONS (2)
  - DRUG TOXICITY [None]
  - INAPPROPRIATE SCHEDULE OF DRUG ADMINISTRATION [None]
